FAERS Safety Report 6432346-X (Version None)
Quarter: 2009Q4

REPORT INFORMATION
  Report Type: 
  Country: None (occurrence: None)
  Receive Date: 20091109
  Receipt Date: 20091008
  Transmission Date: 20100525
  Serious: No
  Sender: FDA-Public Use
  Company Number: US-BAYER-200916608NA

PATIENT
  Age: 39 Year
  Sex: Female
  Weight: 59 kg

DRUGS (2)
  1. MIRENA [Suspect]
     Indication: CONTRACEPTION
     Dosage: CONTINUOUS
     Route: 015
     Dates: start: 20090311, end: 20090312
  2. MIRENA [Suspect]
     Dosage: CONTINUOUS
     Route: 015
     Dates: start: 20090311, end: 20090311

REACTIONS (5)
  - DEVICE EXPULSION [None]
  - DIZZINESS [None]
  - PALPITATIONS [None]
  - PROCEDURAL HEADACHE [None]
  - PROCEDURAL PAIN [None]
